FAERS Safety Report 4704152-5 (Version None)
Quarter: 2005Q2

REPORT INFORMATION
  Report Type: 
  Country: None (occurrence: None)
  Receive Date: 20050629
  Receipt Date: 20050621
  Transmission Date: 20051028
  Serious: Yes (Other)
  Sender: FDA-Public Use
  Company Number: FRWYE763321JUN05

PATIENT
  Sex: Male

DRUGS (1)
  1. ADEPAL (LEVONORGESTREL/ETHINYL ESTRADIOL, TABLET, 0) [Suspect]
     Indication: CONTRACEPTION
     Dosage: 1 TAB 1X PER 1 DAY, TRANSPLACENTAL
     Route: 064
     Dates: start: 20040103, end: 20040124

REACTIONS (5)
  - CAESAREAN SECTION [None]
  - DRUG EXPOSURE DURING PREGNANCY [None]
  - FOETAL CARDIAC DISORDER [None]
  - FOETAL DISTRESS SYNDROME [None]
  - PREMATURE BABY [None]
